FAERS Safety Report 9808758 (Version 11)
Quarter: 2016Q2

REPORT INFORMATION
  Report Type: Spontaneous
  Country: US (occurrence: US)
  Receive Date: 20140110
  Receipt Date: 20160411
  Transmission Date: 20160815
  Serious: Yes (Disabling)
  Sender: FDA-Public Use
  Company Number: US-009507513-1109USA02509

PATIENT
  Sex: Male
  Weight: 73.47 kg

DRUGS (5)
  1. PROPECIA [Suspect]
     Active Substance: FINASTERIDE
     Dosage: UNKNOWN, QD
     Route: 048
     Dates: end: 200809
  2. FINASTERIDE. [Suspect]
     Active Substance: FINASTERIDE
     Indication: ALOPECIA
     Route: 048
  3. PROPECIA [Suspect]
     Active Substance: FINASTERIDE
     Indication: ANDROGENETIC ALOPECIA
     Dosage: 1 MG, QD
     Route: 048
     Dates: start: 20050804, end: 200811
  4. PROPECIA [Suspect]
     Active Substance: FINASTERIDE
     Indication: ALOPECIA
     Dosage: UNK, UNKNOWN
     Route: 065
     Dates: start: 200308, end: 200311
  5. PROSCAR [Suspect]
     Active Substance: FINASTERIDE
     Indication: ANDROGENETIC ALOPECIA
     Dosage: UNK UNK
     Route: 048

REACTIONS (34)
  - Tremor [Unknown]
  - Sensory disturbance [Unknown]
  - Dihydrotestosterone decreased [Unknown]
  - Aphthous ulcer [Unknown]
  - Acne [Unknown]
  - Prostatitis [Not Recovered/Not Resolved]
  - Anogenital warts [Unknown]
  - Emotional distress [Not Recovered/Not Resolved]
  - Scrotal angiokeratoma [Unknown]
  - Erectile dysfunction [Unknown]
  - Urticaria [Unknown]
  - Hypertonic bladder [Unknown]
  - Parkinson^s disease [Unknown]
  - Feeling abnormal [Unknown]
  - Collagen disorder [Unknown]
  - Drug administration error [Unknown]
  - Laceration [Unknown]
  - Haematuria [Unknown]
  - Anxiety [Not Recovered/Not Resolved]
  - Essential tremor [Recovering/Resolving]
  - Disturbance in attention [Unknown]
  - Amnesia [Unknown]
  - Benign prostatic hyperplasia [Unknown]
  - Sexual dysfunction [Unknown]
  - Libido decreased [Not Recovered/Not Resolved]
  - Sexual dysfunction [Not Recovered/Not Resolved]
  - Terminal dribbling [Not Recovered/Not Resolved]
  - Dandruff [Unknown]
  - Pain in extremity [Unknown]
  - Cough [Recovered/Resolved]
  - Peripheral coldness [Unknown]
  - Arthralgia [Unknown]
  - Dermal cyst [Unknown]
  - Limb injury [Unknown]

NARRATIVE: CASE EVENT DATE: 200401
